FAERS Safety Report 4997860-2 (Version None)
Quarter: 2006Q2

REPORT INFORMATION
  Report Type: 
  Country: None (occurrence: None)
  Receive Date: 20060508
  Receipt Date: 20060508
  Transmission Date: 20061013
  Serious: Yes (Other)
  Sender: FDA-Public Use
  Company Number: None

PATIENT
  Age: 85 Year
  Sex: Female
  Weight: 65.318 kg

DRUGS (2)
  1. ATENOLOL [Suspect]
     Indication: HYPERTENSION
     Dosage: 50 MG PO DAILY
     Route: 048
     Dates: start: 20060221
  2. TRIAMPTERENE/HYDROCHLOROTHIAZIDE [Concomitant]

REACTIONS (1)
  - CUTANEOUS VASCULITIS [None]
